FAERS Safety Report 12158034 (Version 1)
Quarter: 2016Q1

REPORT INFORMATION
  Report Type: Spontaneous
  Country: US (occurrence: None)
  Receive Date: 20160307
  Receipt Date: 20160307
  Transmission Date: 20160526
  Serious: Yes (Other)
  Sender: FDA-Public Use
  Company Number: None

PATIENT
  Age: 48 Year
  Sex: Male

DRUGS (1)
  1. HUMIRA [Suspect]
     Active Substance: ADALIMUMAB
     Indication: RHEUMATOID ARTHRITIS
     Dosage: EVERY 14 DAYS
     Dates: start: 20160108, end: 20160205

REACTIONS (3)
  - Local swelling [None]
  - Urticaria [None]
  - Joint swelling [None]

NARRATIVE: CASE EVENT DATE: 20160205
